FAERS Safety Report 9565314 (Version 2)
Quarter: 2013Q4

REPORT INFORMATION
  Report Type: Spontaneous
  Country: US (occurrence: US)
  Receive Date: 20130930
  Receipt Date: 20131001
  Transmission Date: 20140711
  Serious: Yes (Hospitalization, Other)
  Sender: FDA-Public Use
  Company Number: US-TEVA-434994USA

PATIENT
  Sex: Female
  Weight: 28.15 kg

DRUGS (7)
  1. QVAR [Suspect]
     Indication: ASTHMA
     Dosage: 160 MICROGRAM DAILY; 1 PUFF BID
     Dates: end: 2013
  2. QVAR [Suspect]
     Dosage: 160 MICROGRAM DAILY; 4 PUFFS BID
     Dates: start: 2013
  3. ANTIBIOTICS [Suspect]
  4. PREDNISONE [Concomitant]
     Indication: ASTHMA
     Dates: end: 2013
  5. INDERAL [Concomitant]
     Indication: HEART RATE INCREASED
  6. LISINOPRIL [Concomitant]
     Indication: BLOOD PRESSURE INCREASED
  7. TAPAZOLE [Concomitant]
     Indication: HYPERTHYROIDISM

REACTIONS (6)
  - Periorbital oedema [Not Recovered/Not Resolved]
  - Periorbital cellulitis [Unknown]
  - Adrenal insufficiency [Unknown]
  - Hyperthyroidism [Unknown]
  - Swollen tear duct [Not Recovered/Not Resolved]
  - Eye swelling [Not Recovered/Not Resolved]
